FAERS Safety Report 5669582-6 (Version None)
Quarter: 2008Q1

REPORT INFORMATION
  Report Type: 
  Country: None (occurrence: None)
  Receive Date: 20080317
  Receipt Date: 20080307
  Transmission Date: 20080703
  Serious: Yes (Other)
  Sender: FDA-Public Use
  Company Number: PHBS2007JP15088

PATIENT
  Age: 62 Year
  Sex: Female

DRUGS (22)
  1. TEGRETOL [Suspect]
     Indication: SCHIZOPHRENIA
     Dosage: 600 MG/DAY
     Route: 048
  2. TEGRETOL [Suspect]
     Dosage: 300 MG/DAY
     Route: 048
     Dates: end: 20070323
  3. HALOPERIDOL [Concomitant]
     Dosage: 4.5 MG/DAY
     Route: 065
  4. CLOCAPRAMINE HYDROCHLORIDE [Concomitant]
     Dosage: 75 MG/DAY
     Route: 065
  5. PROPERICIAZINE [Concomitant]
     Dosage: 75 MG/DAY
  6. PROPERICIAZINE [Concomitant]
     Dosage: 15 MG/DAY
  7. VEGETAMIN A [Concomitant]
     Dosage: 1 DF/DAY
     Route: 065
  8. BIPERIDEN HYDROCHLORIDE TAB [Concomitant]
     Dosage: 3 MG/DAY
     Route: 065
  9. TRIHEXYPHENIDYL HYDROCHLORIDE [Concomitant]
     Dosage: 6 MG/DAY
     Route: 065
  10. RISPERIDONE [Concomitant]
     Dosage: 6 MG/DAY
  11. PIPAMPERONE HYDROCHLORIDE [Concomitant]
     Dosage: 150 MG/DAY
     Route: 065
  12. VEGETAMIN B [Concomitant]
     Dosage: 300 MG/DAY
     Route: 065
  13. ZOPICLONE [Concomitant]
     Dosage: 10 MG/DAY
     Route: 065
  14. ZONISAMIDE [Concomitant]
     Dosage: 100 MG/DAY
  15. ZONISAMIDE [Concomitant]
     Dosage: 200 MG/DAY
  16. ZONISAMIDE [Concomitant]
     Dosage: 100 MG/DAY
  17. ZONISAMIDE [Concomitant]
     Dosage: 200 MG/DAY
  18. ZONISAMIDE [Concomitant]
     Dosage: 100 MG/DAY
  19. ZONISAMIDE [Concomitant]
     Dosage: 200 MG/DAY
  20. BROMAZEPAM [Concomitant]
     Dosage: 2 MG/DAY
     Route: 065
  21. ARIPIPRAZOLE [Concomitant]
     Route: 065
  22. PROMETHAZINE TEOCLATE [Concomitant]
     Dosage: 25 MG/DAY
     Route: 065

REACTIONS (7)
  - CHEST DISCOMFORT [None]
  - DYSKINESIA [None]
  - HALLUCINATION [None]
  - HALLUCINATION, AUDITORY [None]
  - INITIAL INSOMNIA [None]
  - PARAESTHESIA [None]
  - THIRST [None]
